FAERS Safety Report 12258258 (Version 3)
Quarter: 2019Q4

REPORT INFORMATION
  Report Type: Spontaneous
  Country: US (occurrence: US)
  Receive Date: 20160412
  Receipt Date: 20191022
  Transmission Date: 20200122
  Serious: Yes (Death, Other)
  Sender: FDA-Public Use
  Company Number: US-PFIZER INC-2016208380

PATIENT
  Age: 62 Year
  Sex: Male

DRUGS (50)
  1. VIAGRA [Suspect]
     Active Substance: SILDENAFIL CITRATE
     Indication: ERECTILE DYSFUNCTION
     Dosage: UNK, REGULARLY
     Route: 048
     Dates: start: 200001, end: 201003
  2. VIAGRA [Suspect]
     Active Substance: SILDENAFIL CITRATE
     Dosage: 50 MG, AS NEEDED (AVERAGE 1-2 TIMES PER WEEK)
     Dates: start: 20000212, end: 200112
  3. VIAGRA [Suspect]
     Active Substance: SILDENAFIL CITRATE
     Dosage: 100 MG, AS NEEDED (AVERAGE 1-2 TIMES PER WEEK)
     Dates: start: 20090612, end: 201006
  4. HYDROCODONE BITARTRATE AND ACETAMINOPHEN [Concomitant]
     Active Substance: ACETAMINOPHEN\HYDROCODONE BITARTRATE
     Indication: PAIN
     Dosage: 1 DF, AS NEEDED (TAKE 1 TABLET (5/500 MG) BY MOUTH EVERY 4 TO 6 HOURS, AS NEEDED)
     Route: 048
  5. HYZAAR [Concomitant]
     Active Substance: HYDROCHLOROTHIAZIDE\LOSARTAN POTASSIUM
     Indication: BLOOD PRESSURE ABNORMAL
     Dosage: 1 DF, DAILY (TAKE 1 TABLET (100/25 MG) BY MOUTH IN THE MORNING)
     Route: 048
  6. CEPHALEXIN HCL [Concomitant]
     Active Substance: CEPHALEXIN HYDROCHLORIDE
     Dosage: 1 DF, 2X/DAY (TAKE 1 CAPSULE BY MOUTH TWICE DAILY)
     Route: 048
  7. ANUCORT-HC [Concomitant]
     Active Substance: HYDROCORTISONE ACETATE
     Dosage: 1 DF, 2X/DAY (INSERT 1 SUPPOSITORY RECTALLY TWICE DAILY)
     Route: 054
  8. LORAZEPAM. [Concomitant]
     Active Substance: LORAZEPAM
     Indication: ANXIETY
     Dosage: UNK UNK, AS NEEDED (TAKE 1/2 TO 1 TABLET BY MOUTH EVERY 6 HOURS AS NEEDED)
     Route: 048
  9. HYDROCODONE BITARTRATE AND ACETAMINOPHEN [Concomitant]
     Active Substance: ACETAMINOPHEN\HYDROCODONE BITARTRATE
     Dosage: 1 DF, AS NEEDED (TAKE 1 TABLET (5/500 MG) BY MOUTH 4 TIMES DAILY AS NEEDED)
     Route: 048
  10. BACTROBAN [Concomitant]
     Active Substance: MUPIROCIN\MUPIROCIN CALCIUM
     Indication: SKIN LESION
     Dosage: APPLY TO FACIAL LESIONS TWICE A DAY
     Route: 061
  11. HYDROCORTISONE ACETATE. [Concomitant]
     Active Substance: HYDROCORTISONE ACETATE
     Dosage: 1 DF, 2X/DAY (INSERT 1 SUPPOSITORY RECTALLY, TWICE DAILY)
     Route: 054
  12. DIAZEPAM. [Concomitant]
     Active Substance: DIAZEPAM
     Dosage: UNK, AS NEEDED (TAKE 1/2 TO 1 TABLET BY MOUTH TWICE DAILY AS NEEDED)
     Route: 048
  13. LIDOCAINE. [Concomitant]
     Active Substance: LIDOCAINE
     Indication: PAIN
     Dosage: UNK UNK, AS NEEDED (APPLY SMALL AMOUNT TO AREA UP TO EVERY 4 HOURS AS NEEDED)
  14. HYDROCODONE BITARTRATE AND ACETAMINOPHEN [Concomitant]
     Active Substance: ACETAMINOPHEN\HYDROCODONE BITARTRATE
     Dosage: UNK UNK, AS NEEDED (TAKE 1 TO 2 TABLETS (7.5/325 MG) BY MOUTH EVERY 3 TO 4 HOURS AS NEEDED)
     Route: 048
  15. HYDROCODONE BITARTRATE AND ACETAMINOPHEN [Concomitant]
     Active Substance: ACETAMINOPHEN\HYDROCODONE BITARTRATE
     Dosage: UNK UNK, AS NEEDED (TAKE 1/2 TO 1 TABLET BY MOUTH EVERY 4 HOURS AS NEEDED)
     Route: 048
  16. MICRO-K [Concomitant]
     Active Substance: POTASSIUM CHLORIDE
     Dosage: 1 DF, 3X/WEEK (TAKE 1 CAPSULE BY MOUTH ON MONDAY, WEDNESDAY AND FRIDAY)
     Route: 048
  17. LEVAQUIN [Concomitant]
     Active Substance: LEVOFLOXACIN
     Indication: INFECTION
     Dosage: 1 DF, DAILY (TAKE 1 TABLET BY MOUTH EVERY DAY)
     Route: 048
  18. MELOXICAM. [Concomitant]
     Active Substance: MELOXICAM
     Indication: ARTHRITIS
     Dosage: 1 DF, AS NEEDED (TAKE 1 TABLET BY MOUTH EVERY DAY AFTER A MEAL AS NEEDED)
     Route: 048
  19. SKELAXIN [METAXALONE] [Concomitant]
     Indication: MUSCLE SPASMS
     Dosage: 1 DF, AS NEEDED (TAKE 1 TABLET BY MOUTH THREE TIMES DAILY AS NEEDED)
     Route: 048
  20. ASTELIN [Concomitant]
     Active Substance: AZELASTINE HYDROCHLORIDE
     Dosage: UNK UNK, AS NEEDED (USE ONE SPRAY EACH NOSTRIL AT BEDTIME AS NEEDED)
     Route: 045
  21. VIAGRA [Suspect]
     Active Substance: SILDENAFIL CITRATE
     Dosage: 0.5 DF, AS NEEDED (ONE HOUR PRIOR TO NEED, AVERAGE 1-2 TIMES PER WEEK)
     Dates: start: 20060515, end: 2009
  22. VEETIDS [Concomitant]
     Active Substance: PENICILLIN V POTASSIUM
     Dosage: TAKE 4 TABLETS BY MOUTH FOR THE FIRST DOSE, THEN ONE TABLET, FOUR TIMES DAILY
     Route: 048
  23. VIOXX [Concomitant]
     Active Substance: ROFECOXIB
     Indication: ARTHRITIS
     Dosage: 1 DF, AS NEEDED (TAKE 1 TABLET BY MOUTH EVERY DAY AS NEEDED)
  24. ALPRAZOLAM. [Concomitant]
     Active Substance: ALPRAZOLAM
     Indication: ANXIETY
     Dosage: TAKE 1/2 TO 1 TABLET BY MOUTH TWICE DAILY AS NEEDED
     Route: 048
  25. DIAZEPAM. [Concomitant]
     Active Substance: DIAZEPAM
     Indication: NERVOUSNESS
     Dosage: 1 DF, UNK (TAKE 1 TABLET BY MOUTH 1 HOUR PRIOR TO PROCEDURE)
     Route: 048
  26. VIAGRA [Suspect]
     Active Substance: SILDENAFIL CITRATE
     Dosage: ONE-HALF OR ONE TABLET, AS NEEDED (AVERAGE 1-2 TIMES PER WEEK)
     Route: 048
     Dates: start: 20011220, end: 20040716
  27. CIALIS [Suspect]
     Active Substance: TADALAFIL
     Dosage: 2.5 MG, UNK
     Dates: start: 20100609, end: 2010
  28. LIPITOR [Concomitant]
     Active Substance: ATORVASTATIN CALCIUM
     Indication: BLOOD CHOLESTEROL ABNORMAL
     Dosage: 1 DF, DAILY (TAKE 1 TABLET BY MOUTH, EVERY DAY)
     Route: 048
  29. MICROZIDE [HYDROCHLOROTHIAZIDE] [Concomitant]
     Dosage: 1 DF, DAILY (TAKE 1 CAPSULE BY MOUTH, EVERY DAY)
     Route: 048
  30. VIOXX [Concomitant]
     Active Substance: ROFECOXIB
     Indication: PAIN
  31. VIAGRA [Suspect]
     Active Substance: SILDENAFIL CITRATE
     Dosage: 0.5 DF, AS NEEDED (AVERAGE 1-2 TIMES PER WEEK)
     Dates: start: 20000212, end: 200112
  32. TIAZAC [DILTIAZEM HYDROCHLORIDE] [Concomitant]
     Dosage: 1 DF, DAILY (TAKE 1 CAPSULE (240 MG/24HR) BY MOUTH, EVERY DAY)
     Route: 048
  33. HYDROCODONE BITARTRATE AND ACETAMINOPHEN [Concomitant]
     Active Substance: ACETAMINOPHEN\HYDROCODONE BITARTRATE
     Dosage: 1 DF, AS NEEDED (TAKE 1 TABLET (7.5/650 MG) BY MOUTH, EVERY 4 HOURS, AS NEEDED)
     Route: 048
  34. HYDROCODONE BITARTRATE AND ACETAMINOPHEN [Concomitant]
     Active Substance: ACETAMINOPHEN\HYDROCODONE BITARTRATE
     Dosage: 1 DF, AS NEEDED (TAKE 1/2 TO 1 TABLET (10/500 MG) BY MOUTH EVERY 6 TO 8 HOURS AS NEEDED)
     Route: 048
  35. ALPRAZOLAM. [Concomitant]
     Active Substance: ALPRAZOLAM
     Indication: NERVOUSNESS
     Dosage: 1 DF, AS NEEDED (TAKE 1 TABLET BY MOUTH EVERY 8 HOURS AS NEEDED)
     Route: 048
  36. HYDRON CP [Concomitant]
     Indication: COUGH
     Dosage: TAKE 1 TO 2 TEASPOONFUL BY MOUTH 4 TIMES DAILY AS NEEDED
     Route: 048
  37. MELOXICAM. [Concomitant]
     Active Substance: MELOXICAM
     Dosage: 1 DF, AS NEEDED (TAKE 1 TABLET BY MOUTH TWICE DAILY AS NEEDED)
     Route: 048
  38. VIAGRA [Suspect]
     Active Substance: SILDENAFIL CITRATE
     Dosage: 0.5 DF, AS NEEDED (ONE HOUR PRIOR TO NEED, AVERAGE 1-2 TIMES PER WEEK)
     Route: 048
     Dates: start: 20040716, end: 20060304
  39. VIOXX [Concomitant]
     Active Substance: ROFECOXIB
     Indication: CARPAL TUNNEL SYNDROME
     Dosage: 1 DF, DAILY (TAKE 1 TABLET BY MOUTH, EVERY DAY)
     Route: 048
  40. MOBIC [Concomitant]
     Active Substance: MELOXICAM
     Dosage: 1 DF, DAILY (TAKE 1 TABLET BY MOUTH EVERY DAY WITH FOOD)
     Route: 048
  41. HISTA-VENT DA [Concomitant]
     Indication: SINUS DISORDER
     Dosage: 1 DF, AS NEEDED (TAKE 1/2 TO 1 TABLET BY MOUTH TWICE DAILY AS NEEDED)
     Route: 048
  42. IBUPROFEN. [Concomitant]
     Active Substance: IBUPROFEN
     Indication: PAIN
     Dosage: 1 DF, AS NEEDED (TAKE 1 TABLET BY MOUTH EVERY 6 HOURS AS NEEDED)
     Route: 048
  43. CHLORHEXIDINE GLUCONATE. [Concomitant]
     Active Substance: CHLORHEXIDINE GLUCONATE
     Dosage: UNK UNK, 2X/DAY
  44. LOSARTAN/HCTZ [Concomitant]
     Active Substance: HYDROCHLOROTHIAZIDE\LOSARTAN
     Dosage: 1 DF, DAILY (TAKE 1 TABLET (100/25 MG) BY MOUTH EVERY DAY)
     Route: 048
  45. ONDANSETRON [Concomitant]
     Active Substance: ONDANSETRON
     Indication: NAUSEA
     Dosage: 1 DF, AS NEEDED (TAKE 1 TABLET BY MOUTH EVERY 8 HOURS AS NEEDED)
     Route: 048
  46. CIALIS [Suspect]
     Active Substance: TADALAFIL
     Dosage: 10 MG, UNK
     Dates: start: 20041021, end: 2004
  47. LIPITOR [Concomitant]
     Active Substance: ATORVASTATIN CALCIUM
     Dosage: 1 DF, DAILY (TAKE 1 TABLET BY MOUTH, EVERY DAY)
     Route: 048
  48. HYDROCHLOROTHIAZIDE. [Concomitant]
     Active Substance: HYDROCHLOROTHIAZIDE
     Dosage: 1 DF, DAILY (TAKE 1 CAPSULE BY MOUTH, EVERY DAY)
     Route: 048
  49. TRIAMTERENE AND HYDROCHLOROTHIAZIDE [Concomitant]
     Active Substance: HYDROCHLOROTHIAZIDE\TRIAMTERENE
     Dosage: 1 DF, DAILY (TAKE 1 TABLET (37.5/25 MG) TABLET BY MOUTH, EVERY MORNING)
     Route: 048
  50. TRIMOX [AMOXICILLIN TRIHYDRATE] [Concomitant]
     Dosage: 1 DF, 4X/DAY (TAKE 1 CAPSULE BY MOUTH, 4 TIMES DAILY UNTIL GONE)
     Route: 048

REACTIONS (7)
  - Metastases to spleen [Unknown]
  - Metastases to lymph nodes [Unknown]
  - Metastases to liver [Fatal]
  - Metastases to central nervous system [Unknown]
  - Metastatic malignant melanoma [Fatal]
  - Hepatic cancer [Fatal]
  - Metastases to pancreas [Unknown]

NARRATIVE: CASE EVENT DATE: 20100820
